FAERS Safety Report 17393531 (Version 2)
Quarter: 2020Q1

REPORT INFORMATION
  Report Type: Spontaneous
  Country: US (occurrence: US)
  Receive Date: 20200208
  Receipt Date: 20200218
  Transmission Date: 20200409
  Serious: No
  Sender: FDA-Public Use
  Company Number: US-009507513-2001USA011161

PATIENT
  Sex: Female

DRUGS (4)
  1. KEYTRUDA [Suspect]
     Active Substance: PEMBROLIZUMAB
     Dosage: 200 MILLIGRAM, Q3W
     Route: 065
     Dates: start: 20160707, end: 20170227
  2. VALACYCLOVIR HYDROCHLORIDE. [Suspect]
     Active Substance: VALACYCLOVIR HYDROCHLORIDE
     Dosage: UNK
     Dates: start: 20180926
  3. VITAMINS (UNSPECIFIED) [Suspect]
     Active Substance: VITAMINS
  4. FLUTICASONE. [Suspect]
     Active Substance: FLUTICASONE
     Dosage: NASAL SPRAY
     Dates: start: 20190708

REACTIONS (1)
  - Exposure via body fluid [Unknown]
